FAERS Safety Report 15050119 (Version 1)
Quarter: 2018Q2

REPORT INFORMATION
  Report Type: Report from Study
  Country: NL (occurrence: NL)
  Receive Date: 20180622
  Receipt Date: 20180622
  Transmission Date: 20180711
  Serious: Yes (Hospitalization)
  Sender: FDA-Public Use
  Company Number: NL-PFIZER INC-2018244337

PATIENT
  Age: 69 Year
  Sex: Female
  Weight: 57 kg

DRUGS (19)
  1. FRAGMIN [Concomitant]
     Active Substance: DALTEPARIN SODIUM
     Indication: PROPHYLAXIS
     Dosage: 2500 IU, 1X/DAY
     Route: 058
     Dates: start: 20180108, end: 20180112
  2. MOVICOLON [Concomitant]
     Active Substance: POLYETHYLENE GLYCOL 3350\POTASSIUM CHLORIDE\SODIUM BICARBONATE\SODIUM CHLORIDE
     Indication: CONSTIPATION
     Dosage: 1 DF, AS NEEDED
     Route: 048
     Dates: start: 20171201
  3. TOPOTECAN HYDROCHLORIDE. [Suspect]
     Active Substance: TOPOTECAN HYDROCHLORIDE
     Dosage: 1 DF(1 MG/M2), QD (DAYS 1-5 OF EACH 21 DAY CYCLE)
     Route: 042
     Dates: start: 20171204
  4. OXAZEPAM. [Concomitant]
     Active Substance: OXAZEPAM
     Indication: ANXIETY
     Dosage: 1 DF, 1X/DAY
     Route: 048
     Dates: start: 20171201
  5. METFORMINE [Concomitant]
     Active Substance: METFORMIN HYDROCHLORIDE
     Indication: DIABETES MELLITUS
     Dosage: 500 MG, BID
     Route: 048
     Dates: start: 20171219
  6. METOCLOPRAMIDE. [Concomitant]
     Active Substance: METOCLOPRAMIDE
     Indication: PROPHYLAXIS
     Dosage: 10 MG, AS NEEDED
     Route: 048
     Dates: start: 20171117
  7. DEXAMETHASON /00016001/ [Concomitant]
     Active Substance: DEXAMETHASONE
     Indication: PROPHYLAXIS
     Dosage: 4 MG, AS NEEDED
     Route: 048
     Dates: start: 20171117
  8. MIDALGAN /00165001/ [Concomitant]
     Indication: ARTHRITIS
     Dosage: UNK UNK, AS NEEDED
     Route: 061
     Dates: start: 2017
  9. YELLOX [Concomitant]
     Active Substance: BROMFENAC SODIUM
     Indication: CATARACT
     Dosage: 2 GTT, 1X/DAY
     Route: 047
     Dates: start: 20171123
  10. OXYGEN. [Concomitant]
     Active Substance: OXYGEN
     Indication: DYSPNOEA
     Dosage: 1 L, AS NEEDED
     Route: 055
     Dates: start: 20171201
  11. METRONIDAZOL /00012501/ [Concomitant]
     Active Substance: METRONIDAZOLE
     Indication: CLOSTRIDIAL INFECTION
     Dosage: 500 MG, TID
     Route: 048
     Dates: start: 20171126, end: 20171206
  12. TOPOTECAN HYDROCHLORIDE. [Suspect]
     Active Substance: TOPOTECAN HYDROCHLORIDE
     Indication: SMALL CELL LUNG CANCER
     Dosage: 1 DF(1.5MG/M2), QD (DAYS 1-5 OF EACH 21 DAY CYCLE)
     Route: 042
     Dates: start: 20171113
  13. JARDIANCE [Concomitant]
     Active Substance: EMPAGLIFLOZIN
     Indication: DIABETES MELLITUS
     Dosage: 10 MG, 1X/DAY
     Route: 048
     Dates: start: 20171219
  14. IBUPROFEN. [Concomitant]
     Active Substance: IBUPROFEN
     Indication: ARTHRITIS
     Dosage: 500 MG, AS NEEDED
     Route: 048
     Dates: start: 2017
  15. RELVAR ELLIPTA [Concomitant]
     Active Substance: FLUTICASONE FUROATE\VILANTEROL TRIFENATATE
     Indication: DYSPNOEA
     Dosage: 1 DF, 1X/DAY
     Route: 055
     Dates: start: 20171023
  16. PARACETAMOL [Concomitant]
     Active Substance: ACETAMINOPHEN
     Indication: ARTHRITIS
     Dosage: 500 MG, AS NEEDED
     Route: 048
     Dates: start: 2007
  17. PRED FORTE [Concomitant]
     Active Substance: PREDNISOLONE ACETATE
     Indication: CATARACT
     Dosage: 3 GTT, 1X/DAY
     Route: 047
     Dates: start: 20171123
  18. SPIRIVA [Concomitant]
     Active Substance: TIOTROPIUM BROMIDE MONOHYDRATE
     Indication: DYSPNOEA
     Dosage: 1 DF, 1X/DAY
     Route: 055
     Dates: start: 2017
  19. NOVORAPID [Concomitant]
     Active Substance: INSULIN ASPART
     Indication: DIABETES MELLITUS
     Dosage: UNK, PRN
     Route: 058
     Dates: start: 20171214, end: 20171219

REACTIONS (5)
  - Urinary tract infection [Unknown]
  - Leukopenia [Unknown]
  - Blood glucose increased [Unknown]
  - Febrile neutropenia [Recovered/Resolved]
  - Pyrexia [Unknown]

NARRATIVE: CASE EVENT DATE: 20171214
